FAERS Safety Report 20947595 (Version 7)
Quarter: 2022Q3

REPORT INFORMATION
  Report Type: Spontaneous
  Country: US (occurrence: US)
  Receive Date: 20220611
  Receipt Date: 20220818
  Transmission Date: 20221026
  Serious: Yes (Death, Life-Threatening, Hospitalization, Other)
  Sender: FDA-Public Use
  Company Number: US-UNITED THERAPEUTICS-UNT-2022-012661

PATIENT
  Age: 80 Year
  Sex: Male

DRUGS (4)
  1. TYVASO [Suspect]
     Active Substance: TREPROSTINIL
     Indication: Pulmonary arterial hypertension
     Dosage: UNK
     Dates: start: 20200904
  2. TYVASO [Suspect]
     Active Substance: TREPROSTINIL
     Dosage: 78 ?G, QID
  3. TYVASO [Suspect]
     Active Substance: TREPROSTINIL
     Dosage: 24 ?G, QID
     Dates: end: 202208
  4. ELIQUIS [Suspect]
     Active Substance: APIXABAN
     Indication: Anticoagulant therapy
     Dosage: UNK
     Route: 065

REACTIONS (8)
  - General physical health deterioration [Fatal]
  - Cardiac arrest [Unknown]
  - Aspiration [Recovered/Resolved]
  - Epistaxis [Recovered/Resolved]
  - Myocardial infarction [Recovered/Resolved]
  - Renal failure [Unknown]
  - Product administration error [Unknown]
  - Off label use [Recovered/Resolved]

NARRATIVE: CASE EVENT DATE: 20220601
